FAERS Safety Report 22354593 (Version 2)
Quarter: 2023Q2

REPORT INFORMATION
  Report Type: Spontaneous
  Country: US (occurrence: US)
  Receive Date: 20230523
  Receipt Date: 20230525
  Transmission Date: 20230721
  Serious: No
  Sender: FDA-Public Use
  Company Number: US-SANOFI-01620391

PATIENT
  Sex: Male

DRUGS (1)
  1. LANTUS SOLOSTAR [Suspect]
     Active Substance: INSULIN GLARGINE
     Dosage: 10 UNITS IN THE MORNING AND 5 UNITS AT NIGHT TWICE A DAY, BID

REACTIONS (3)
  - Hypertension [Not Recovered/Not Resolved]
  - Device issue [Unknown]
  - Inappropriate schedule of product administration [Unknown]
